FAERS Safety Report 7295723-3 (Version None)
Quarter: 2011Q1

REPORT INFORMATION
  Report Type: 
  Country: None (occurrence: None)
  Receive Date: 20110216
  Receipt Date: 20101222
  Transmission Date: 20110831
  Serious: No
  Sender: FDA-Public Use
  Company Number: US-ABBOTT-10P-163-0693358-00

PATIENT
  Sex: Male
  Weight: 88.076 kg

DRUGS (4)
  1. UNKNOWN MEDICINE [Concomitant]
     Indication: SWELLING
  2. UNKNOWN MEDICINE [Concomitant]
     Indication: ILL-DEFINED DISORDER
  3. SIMCOR [Suspect]
     Indication: LOW DENSITY LIPOPROTEIN INCREASED
     Dates: start: 20101112, end: 20101215
  4. UNKNOWN MEDICINE [Concomitant]
     Indication: BLOOD PRESSURE

REACTIONS (4)
  - ILL-DEFINED DISORDER [None]
  - MUSCULAR WEAKNESS [None]
  - ABASIA [None]
  - PAIN IN EXTREMITY [None]
